FAERS Safety Report 16766087 (Version 1)
Quarter: 2019Q4

REPORT INFORMATION
  Report Type: Spontaneous
  Country: US (occurrence: US)
  Receive Date: 20190831
  Receipt Date: 20190831
  Transmission Date: 20200122
  Serious: Yes (Life-Threatening)
  Sender: FDA-Public Use
  Company Number: None

PATIENT
  Age: 40 Year
  Sex: Female
  Weight: 61.69 kg

DRUGS (1)
  1. KYBELLA [Suspect]
     Active Substance: DEOXYCHOLIC ACID

REACTIONS (4)
  - Spinal cord injury [None]
  - Paralysis [None]
  - Post procedural complication [None]
  - Myelopathy [None]

NARRATIVE: CASE EVENT DATE: 20190815
